FAERS Safety Report 10215166 (Version 2)
Quarter: 2014Q2

REPORT INFORMATION
  Report Type: Spontaneous
  Country: MY (occurrence: MY)
  Receive Date: 20140603
  Receipt Date: 20140605
  Transmission Date: 20141212
  Serious: Yes (Other)
  Sender: FDA-Public Use
  Company Number: ALCN2014MY003229

PATIENT
  Age: 25 Day
  Sex: Female
  Weight: 1.59 kg

DRUGS (1)
  1. CYCLOGYL [Suspect]
     Indication: RETINOPATHY OF PREMATURITY
     Dosage: 1 GTT, ONCE/SINGLE
     Route: 047
     Dates: start: 20130327, end: 20130327

REACTIONS (1)
  - Apnoea [Recovered/Resolved]
